FAERS Safety Report 4784633-9 (Version None)
Quarter: 2005Q3

REPORT INFORMATION
  Report Type: 
  Country: None (occurrence: None)
  Receive Date: 20050928
  Receipt Date: 20050914
  Transmission Date: 20060218
  Serious: Yes (Other)
  Sender: FDA-Public Use
  Company Number: USA0509108120

PATIENT
  Age: 45 Year
  Sex: Female

DRUGS (1)
  1. PROZAC [Suspect]
     Indication: DEPRESSION
     Dosage: 20 MG/1 DAY
     Dates: start: 19900101, end: 20000101

REACTIONS (2)
  - MEMORY IMPAIRMENT [None]
  - TORTICOLLIS [None]
